FAERS Safety Report 18858036 (Version 1)
Quarter: 2021Q1

REPORT INFORMATION
  Report Type: Spontaneous
  Country: JP (occurrence: JP)
  Receive Date: 20210208
  Receipt Date: 20210208
  Transmission Date: 20210420
  Serious: Yes (Other)
  Sender: FDA-Public Use
  Company Number: JP-ROCHE-2764462

PATIENT
  Age: 49 Year
  Sex: Female
  Weight: 57 kg

DRUGS (3)
  1. XOLAIR [Suspect]
     Active Substance: OMALIZUMAB
     Indication: ASTHMA
     Route: 058
     Dates: start: 20131119
  2. XOLAIR [Suspect]
     Active Substance: OMALIZUMAB
     Route: 058
     Dates: start: 20141125
  3. XOLAIR [Suspect]
     Active Substance: OMALIZUMAB
     Dosage: 13TH INJECTION
     Route: 058
     Dates: start: 20141028

REACTIONS (11)
  - Palpitations [Not Recovered/Not Resolved]
  - Gait inability [Unknown]
  - Ventricular extrasystoles [Unknown]
  - Pulse absent [Not Recovered/Not Resolved]
  - Sinus tachycardia [Not Recovered/Not Resolved]
  - Cough [Unknown]
  - Arrhythmia [Recovering/Resolving]
  - Blood creatinine increased [Not Recovered/Not Resolved]
  - Gamma-glutamyltransferase increased [Recovered/Resolved]
  - Dysstasia [Recovering/Resolving]
  - White blood cell count increased [Unknown]

NARRATIVE: CASE EVENT DATE: 20131217
